FAERS Safety Report 5556732-5 (Version None)
Quarter: 2007Q4

REPORT INFORMATION
  Report Type: 
  Country: None (occurrence: None)
  Receive Date: 20071211
  Receipt Date: 20071128
  Transmission Date: 20080405
  Serious: Yes (Hospitalization)
  Sender: FDA-Public Use
  Company Number: B0489997A

PATIENT
  Age: 58 Year
  Sex: Male
  Weight: 48.8978 kg

DRUGS (3)
  1. EPIVIR [Suspect]
     Indication: HEPATITIS B
     Dosage: 100 MG, PER DAY; ORAL
     Route: 048
     Dates: start: 20050901, end: 20070130
  2. ADEFOVIR DIPIVOXIL TABLET (ADEFOVIR DIPIVOXIL) [Suspect]
     Indication: HEPATITIS B
     Dosage: 10 MG, PER DAY; ORAL
     Route: 048
     Dates: start: 20060317
  3. AMLODIPINE [Concomitant]

REACTIONS (2)
  - MILLER FISHER SYNDROME [None]
  - POLYNEUROPATHY [None]
